FAERS Safety Report 11770155 (Version 2)
Quarter: 2015Q4

REPORT INFORMATION
  Report Type: Spontaneous
  Country: US (occurrence: US)
  Receive Date: 20151123
  Receipt Date: 20151123
  Transmission Date: 20160304
  Serious: No
  Sender: FDA-Public Use
  Company Number: US-PERRIGO-15US000512

PATIENT
  Age: 48 Year
  Sex: Female
  Weight: 57.14 kg

DRUGS (10)
  1. POLYETHYLENE GLYCOL 3350. [Suspect]
     Active Substance: POLYETHYLENE GLYCOL 3350
     Indication: CONSTIPATION
     Dosage: LESS THAN A CAPFUL, QD
     Route: 048
     Dates: start: 2013, end: 201405
  2. VICODIN [Concomitant]
     Active Substance: ACETAMINOPHEN\HYDROCODONE BITARTRATE
     Indication: PAIN
     Dosage: UNK
     Route: 065
     Dates: start: 2004
  3. GABAPENTIN. [Concomitant]
     Active Substance: GABAPENTIN
     Indication: NEURALGIA
     Dosage: UNK
     Route: 065
     Dates: start: 2001
  4. MIRTAZAPINE. [Concomitant]
     Active Substance: MIRTAZAPINE
     Indication: DEPRESSION
  5. PANTOPRAZOLE [Concomitant]
     Active Substance: PANTOPRAZOLE SODIUM
     Indication: PROPHYLAXIS
     Dosage: UNK
     Route: 065
     Dates: start: 2014
  6. POLYETHYLENE GLYCOL 3350. [Suspect]
     Active Substance: POLYETHYLENE GLYCOL 3350
     Dosage: 17 G, QD
     Route: 048
     Dates: start: 201405
  7. CLINDAMYCIN [Concomitant]
     Active Substance: CLINDAMYCIN\CLINDAMYCIN PHOSPHATE
     Indication: SINUSITIS
     Dosage: UNK
     Route: 048
     Dates: start: 20150115
  8. MIRTAZAPINE. [Concomitant]
     Active Substance: MIRTAZAPINE
     Indication: APPETITE DISORDER
     Dosage: UNK
     Route: 065
     Dates: start: 201412
  9. TRAMADOL. [Concomitant]
     Active Substance: TRAMADOL
     Indication: PAIN
     Dosage: UNK
     Route: 065
     Dates: start: 201410
  10. BACLOFEN. [Concomitant]
     Active Substance: BACLOFEN
     Indication: MUSCLE SPASMS
     Dosage: UNK
     Route: 065
     Dates: start: 2011

REACTIONS (15)
  - Dry mouth [Unknown]
  - Cachexia [Unknown]
  - Abnormal weight gain [Unknown]
  - Dizziness [Unknown]
  - Dysgeusia [Unknown]
  - Underdose [Recovered/Resolved]
  - Dry eye [Unknown]
  - Hunger [Unknown]
  - Visual acuity reduced [Unknown]
  - Diaphragm muscle weakness [Unknown]
  - Nausea [Unknown]
  - Hypoacusis [Unknown]
  - Incorrect drug administration duration [Unknown]
  - Nasal dryness [Unknown]
  - Abnormal loss of weight [Unknown]

NARRATIVE: CASE EVENT DATE: 2013
